FAERS Safety Report 21148717 (Version 2)
Quarter: 2022Q3

REPORT INFORMATION
  Report Type: Report from Study
  Country: BR (occurrence: BR)
  Receive Date: 20220729
  Receipt Date: 20220824
  Transmission Date: 20221026
  Serious: Yes (Other)
  Sender: FDA-Public Use
  Company Number: BR-JNJFOC-20220745732

PATIENT
  Age: 15 Year
  Sex: Male
  Weight: 56 kg

DRUGS (3)
  1. INFLIXIMAB [Suspect]
     Active Substance: INFLIXIMAB
     Indication: Crohn^s disease
     Dosage: THE LAST DOSE OF ADMINISTRATION WAS ON 27-JUN-2022
     Route: 041
     Dates: start: 20210616
  2. INFLIXIMAB [Suspect]
     Active Substance: INFLIXIMAB
     Dosage: THE LAST DOSE OF ADMINISTRATION WAS ON 27-JUN-2022
     Route: 041
     Dates: start: 20210616
  3. REMICADE [Suspect]
     Active Substance: INFLIXIMAB
     Indication: Crohn^s disease
     Dosage: 3 VIALS
     Route: 041
     Dates: start: 20210616

REACTIONS (5)
  - Crohn^s disease [Recovering/Resolving]
  - Spondylitis [Unknown]
  - Drug level decreased [Unknown]
  - Therapeutic product effect decreased [Unknown]
  - Off label use [Unknown]

NARRATIVE: CASE EVENT DATE: 20220219
